FAERS Safety Report 17675824 (Version 1)
Quarter: 2020Q2

REPORT INFORMATION
  Report Type: Spontaneous
  Country: US (occurrence: US)
  Receive Date: 20200416
  Receipt Date: 20200416
  Transmission Date: 20200714
  Serious: Yes (Hospitalization, Other)
  Sender: FDA-Public Use
  Company Number: US-009507513-2004USA002814

PATIENT
  Age: 59 Year
  Sex: Female

DRUGS (3)
  1. KEYTRUDA [Suspect]
     Active Substance: PEMBROLIZUMAB
     Indication: METASTATIC MALIGNANT MELANOMA
     Dosage: ONE DOSE
  2. COBIMETINIB. [Suspect]
     Active Substance: COBIMETINIB
     Indication: METASTATIC MALIGNANT MELANOMA
     Dosage: UNK
  3. VEMURAFENIB. [Suspect]
     Active Substance: VEMURAFENIB

REACTIONS (3)
  - Systemic inflammatory response syndrome [Unknown]
  - Drug eruption [Unknown]
  - Drug reaction with eosinophilia and systemic symptoms [Unknown]
